FAERS Safety Report 8351684 (Version 4)
Quarter: 2015Q2

REPORT INFORMATION
  Report Type: Spontaneous
  Country: US (occurrence: US)
  Receive Date: 20120124
  Receipt Date: 20150429
  Transmission Date: 20150821
  Serious: Yes (Hospitalization, Other)
  Sender: FDA-Public Use
  Company Number: US-GLAXOSMITHKLINE-A0962498A

PATIENT
  Age: 66 Year
  Sex: Male

DRUGS (1)
  1. AVANDIA [Suspect]
     Active Substance: ROSIGLITAZONE MALEATE
     Indication: DIABETES MELLITUS
     Dosage: 4 MG, QD
     Route: 048
     Dates: start: 200208, end: 201009

REACTIONS (5)
  - Coronary artery disease [Unknown]
  - Arterial occlusive disease [Unknown]
  - Myocardial infarction [Not Recovered/Not Resolved]
  - Coronary artery occlusion [Unknown]
  - Stent placement [Unknown]

NARRATIVE: CASE EVENT DATE: 20090820
